FAERS Safety Report 24139220 (Version 1)
Quarter: 2024Q3

REPORT INFORMATION
  Report Type: Spontaneous
  Country: DE (occurrence: DE)
  Receive Date: 20240726
  Receipt Date: 20240726
  Transmission Date: 20241017
  Serious: Yes (Hospitalization, Other)
  Sender: JOHNSON AND JOHNSON
  Company Number: DE-ABBVIE-5843941

PATIENT
  Age: 19 Year
  Sex: Male

DRUGS (6)
  1. STELARA [Suspect]
     Active Substance: USTEKINUMAB
     Indication: Crohn^s disease
     Route: 058
  2. ADALIMUMAB [Suspect]
     Active Substance: ADALIMUMAB\ISOPROPYL ALCOHOL
     Indication: Crohn^s disease
     Route: 058
     Dates: start: 201707
  3. AZATHIOPRINE [Concomitant]
     Active Substance: AZATHIOPRINE
     Indication: Crohn^s disease
     Route: 065
  4. MEROPENEM [Concomitant]
     Active Substance: MEROPENEM
     Indication: Antibiotic therapy
  5. CEFTRIAXONE [Concomitant]
     Active Substance: CEFTRIAXONE\CEFTRIAXONE SODIUM
     Indication: Antibiotic therapy
     Route: 065
  6. CLINDAMYCIN [Concomitant]
     Active Substance: CLINDAMYCIN
     Indication: Antibiotic therapy
     Route: 065

REACTIONS (16)
  - Transverse sinus thrombosis [Unknown]
  - Otitis media chronic [Unknown]
  - Mastoiditis [Unknown]
  - Paralysis [Unknown]
  - Headache [Unknown]
  - Sigmoid sinus thrombosis [Unknown]
  - Papilloedema [Unknown]
  - Sepsis [Unknown]
  - Pyoderma gangrenosum [Unknown]
  - Impaired healing [Unknown]
  - Vision blurred [Recovered/Resolved]
  - Psoriasis [Unknown]
  - Staphylococcal infection [Unknown]
  - Monoparesis [Unknown]
  - Pain [Unknown]
  - Staphylococcal infection [Unknown]

NARRATIVE: CASE EVENT DATE: 20220101
